FAERS Safety Report 8774961 (Version 5)
Quarter: 2013Q2

REPORT INFORMATION
  Report Type: Spontaneous
  Country: US (occurrence: US)
  Receive Date: 20120910
  Receipt Date: 20130515
  Transmission Date: 20140414
  Serious: No
  Sender: FDA-Public Use
  Company Number: US-BIOGENIDEC-2012BI035532

PATIENT
  Age: 33 Year
  Sex: Female

DRUGS (2)
  1. TYSABRI [Suspect]
     Indication: MULTIPLE SCLEROSIS
     Route: 042
     Dates: start: 20111107, end: 20120928
  2. TYSABRI [Suspect]
     Indication: MULTIPLE SCLEROSIS
     Route: 042
     Dates: start: 20130222

REACTIONS (8)
  - Sinusitis [Recovered/Resolved]
  - Asthma [Not Recovered/Not Resolved]
  - Immune system disorder [Not Recovered/Not Resolved]
  - Pyrexia [Unknown]
  - Rash [Unknown]
  - Bronchitis [Recovered/Resolved]
  - Hypersensitivity [Recovered/Resolved]
  - Malaise [Unknown]
